FAERS Safety Report 6169618-2 (Version None)
Quarter: 2009Q2

REPORT INFORMATION
  Report Type: 
  Country: None (occurrence: None)
  Receive Date: 20090424
  Receipt Date: 20090129
  Transmission Date: 20091009
  Serious: No
  Sender: FDA-Public Use
  Company Number: ALL1-2009-00226

PATIENT
  Age: 36 Year
  Sex: Male
  Weight: 108.8 kg

DRUGS (2)
  1. VYVANSE [Suspect]
     Indication: ATTENTION DEFICIT/HYPERACTIVITY DISORDER
     Dosage: 30 MG, 1X/DAY, QD, ORAL
     Route: 048
     Dates: start: 20081101
  2. MULTIVITAMIN [Concomitant]

REACTIONS (2)
  - FATIGUE [None]
  - LIBIDO INCREASED [None]
